FAERS Safety Report 5097926-5 (Version None)
Quarter: 2006Q3

REPORT INFORMATION
  Report Type: 
  Country: None (occurrence: None)
  Receive Date: 20060905
  Receipt Date: 20060905
  Transmission Date: 20061208
  Serious: Yes (Other)
  Sender: FDA-Public Use
  Company Number: None

PATIENT
  Sex: Female
  Weight: 66.2252 kg

DRUGS (1)
  1. ROBITUSSIN DM DEXTROMETHORPHAN HBRUSP 10MG GUAFENSINSEN 100 MG WYETH C [Suspect]
     Indication: COUGH
     Dates: start: 20060904, end: 20060905

REACTIONS (3)
  - ABNORMAL BEHAVIOUR [None]
  - FEELING ABNORMAL [None]
  - MYDRIASIS [None]
